FAERS Safety Report 8682753 (Version 3)
Quarter: 2013Q1

REPORT INFORMATION
  Report Type: Spontaneous
  Country: GB (occurrence: GB)
  Receive Date: 20120725
  Receipt Date: 20130102
  Transmission Date: 20140127
  Serious: Yes (Other)
  Sender: FDA-Public Use
  Company Number: PHFR2012GB003337

PATIENT
  Sex: Male

DRUGS (1)
  1. CLOZARIL [Suspect]
     Indication: SCHIZOPHRENIA
     Dosage: 400 MG, DAILY (100 MG MANE AND 300 MG NOCTE)
     Route: 048
     Dates: start: 20010701

REACTIONS (3)
  - Panic attack [Unknown]
  - Dyspnoea [Unknown]
  - Anxiety [Unknown]
